FAERS Safety Report 16766363 (Version 1)
Quarter: 2019Q3

REPORT INFORMATION
  Report Type: Report from Study
  Country: SE (occurrence: SE)
  Receive Date: 20190903
  Receipt Date: 20190903
  Transmission Date: 20191005
  Serious: Yes (Life-Threatening, Hospitalization, Other)
  Sender: FDA-Public Use
  Company Number: SE-RECRO GAINESVILLE LLC-REPH-2019-000165

PATIENT
  Age: 55 Year
  Sex: Male
  Weight: 80 kg

DRUGS (2)
  1. VERAPAMIL HYDROCHLORIDE SUSTAINED RELEASE [Suspect]
     Active Substance: VERAPAMIL HYDROCHLORIDE
     Dosage: 2880 MILLIGRAM, UNK
     Route: 048
  2. ATENOLOL. [Suspect]
     Active Substance: ATENOLOL
     Dosage: 1200 MILLIGRAM, UNK
     Route: 048

REACTIONS (13)
  - Pallor [Unknown]
  - Metabolic acidosis [Recovered/Resolved]
  - Bradycardia [Recovered/Resolved]
  - Vomiting [Unknown]
  - Hypothermia [Unknown]
  - Electrocardiogram QRS complex prolonged [Unknown]
  - Nausea [Unknown]
  - Electrocardiogram PQ interval prolonged [Unknown]
  - Lung infection [Unknown]
  - Drug interaction [Unknown]
  - Overdose [Unknown]
  - Hypotension [Recovered/Resolved]
  - Arrhythmia supraventricular [Recovered/Resolved]
